FAERS Safety Report 4932209-2 (Version None)
Quarter: 2006Q1

REPORT INFORMATION
  Report Type: 
  Country: None (occurrence: None)
  Receive Date: 20060228
  Receipt Date: 20060217
  Transmission Date: 20060701
  Serious: Yes (Life-Threatening)
  Sender: FDA-Public Use
  Company Number: 06H-087-0305354-00

PATIENT
  Age: 64 Year
  Sex: Male

DRUGS (14)
  1. PRECEDEX [Suspect]
     Indication: SEDATION
     Dosage: 0.25 MG/KG/HR
     Dates: start: 20051126, end: 20051127
  2. DILTIAZEM [Concomitant]
  3. FENTANYL CITRATE [Concomitant]
  4. DOPAMINE HCL (DOPAMINE HYDROCHLORIDE) [Concomitant]
  5. ALPROSTADIL [Concomitant]
  6. INSULIN HUMAN (INSULIN HUMAN) [Concomitant]
  7. VECURONIUM BROMIDE [Concomitant]
  8. DIAZEPAM [Concomitant]
  9. MIDAZOLAM HCL [Concomitant]
  10. OXYGEN (OXYGEN) [Concomitant]
  11. DOPAMINE HCL [Concomitant]
  12. NORADRENALINE (NOREPINEPHRINE) [Concomitant]
  13. NITRITE AGENT [Concomitant]
  14. VASOPRESSOR [Concomitant]

REACTIONS (3)
  - BRADYCARDIA [None]
  - CARDIAC ARREST [None]
  - VENTRICULAR FIBRILLATION [None]
